FAERS Safety Report 8831520 (Version 1)
Quarter: 2012Q4

REPORT INFORMATION
  Report Type: 
  Country: US (occurrence: US)
  Receive Date: 20121009
  Receipt Date: 20121009
  Transmission Date: 20130627
  Serious: No
  Sender: FDA-Public Use
  Company Number: US-ASTRAZENECA-2012SE76263

PATIENT
  Sex: Female

DRUGS (2)
  1. SYMBICORT [Suspect]
     Indication: ASTHMA
     Dosage: UNKNOWN
     Route: 055
  2. SYMBICORT [Suspect]
     Indication: ASTHMA
     Dosage: UNKNOWN
     Route: 055
     Dates: start: 2012

REACTIONS (1)
  - Coeliac disease [Unknown]
